FAERS Safety Report 8278281 (Version 2)
Quarter: 2013Q2

REPORT INFORMATION
  Report Type: Spontaneous
  Country: US (occurrence: US)
  Receive Date: 20111207
  Receipt Date: 20130614
  Transmission Date: 20140414
  Serious: Yes (Other)
  Sender: FDA-Public Use
  Company Number: US-ASTRAZENECA-2011SE73352

PATIENT
  Age: 61 Year
  Sex: Female
  Weight: 68 kg

DRUGS (7)
  1. SEROQUEL XR [Suspect]
     Indication: SCHIZOPHRENIA
     Route: 048
     Dates: start: 2006, end: 2010
  2. SEROQUEL XR [Suspect]
     Indication: SCHIZOPHRENIA
     Route: 048
     Dates: start: 2010, end: 2013
  3. SEROQUEL XR [Suspect]
     Indication: SCHIZOPHRENIA
     Route: 048
  4. SEROQUEL XR [Suspect]
     Indication: SCHIZOPHRENIA
     Route: 048
  5. SEROQUEL XR [Suspect]
     Indication: SCHIZOPHRENIA
     Dosage: 25 MG, UNKNOWN IF IT WAS SEROQUEL OR SEROQUEL XR
     Route: 048
  6. SEROQUEL XR [Suspect]
     Indication: SCHIZOPHRENIA
     Dosage: 50 MG, UNKNOWN IF IT WAS SEROQUEL OR SEROQUEL XR
     Route: 048
  7. TRAZADONE [Concomitant]
     Indication: SLEEP DISORDER
     Dates: start: 2006

REACTIONS (10)
  - Foot fracture [Unknown]
  - Road traffic accident [Unknown]
  - Suicidal ideation [Unknown]
  - Fall [Unknown]
  - Dysstasia [Unknown]
  - Feeling abnormal [Unknown]
  - Feeling abnormal [Unknown]
  - Dizziness [Unknown]
  - Fatigue [Unknown]
  - Intentional drug misuse [Unknown]
